FAERS Safety Report 4825267-7 (Version None)
Quarter: 2005Q4

REPORT INFORMATION
  Report Type: 
  Country: None (occurrence: None)
  Receive Date: 20051110
  Receipt Date: 20051110
  Transmission Date: 20060501
  Serious: No
  Sender: FDA-Public Use
  Company Number: None

PATIENT
  Age: 52 Year
  Sex: Male
  Weight: 86.1834 kg

DRUGS (1)
  1. FLEXERIL [Suspect]
     Dosage: 10 MG   HS   PO
     Route: 048

REACTIONS (2)
  - FALL [None]
  - GAIT DISTURBANCE [None]
